FAERS Safety Report 9343850 (Version 1)
Quarter: 2013Q2

REPORT INFORMATION
  Report Type: Spontaneous
  Country: US (occurrence: US)
  Receive Date: 20130612
  Receipt Date: 20130612
  Transmission Date: 20140414
  Serious: No
  Sender: FDA-Public Use
  Company Number: US-PFIZER INC-2013174894

PATIENT
  Age: 70 Year
  Sex: Female

DRUGS (2)
  1. LYRICA [Suspect]
     Indication: BACK PAIN
     Dosage: UNK
     Route: 048
     Dates: start: 201209, end: 201209
  2. NUPERCAINAL [Suspect]
     Indication: HAEMORRHOIDS
     Dosage: ABOUT AN 1/8TH OF AN INCH AS NEEDED
     Route: 061
     Dates: start: 1992

REACTIONS (2)
  - Back pain [Unknown]
  - Vision blurred [Unknown]
